FAERS Safety Report 4824789-2 (Version None)
Quarter: 2005Q4

REPORT INFORMATION
  Report Type: 
  Country: None (occurrence: None)
  Receive Date: 20051108
  Receipt Date: 20051024
  Transmission Date: 20060501
  Serious: Yes (Hospitalization)
  Sender: FDA-Public Use
  Company Number: GBS050717966

PATIENT
  Age: 42 Year
  Sex: Female

DRUGS (5)
  1. ZYPREXA [Suspect]
     Indication: BIPOLAR DISORDER
     Dosage: 5 MG/2 DAY
     Dates: start: 20050107, end: 20050112
  2. LITHIUM CARBONATE [Concomitant]
  3. VALPROATE SODIUM [Concomitant]
  4. AMLODIPINE [Concomitant]
  5. LAMOTRIGINE [Concomitant]

REACTIONS (9)
  - AGGRESSION [None]
  - DEPRESSED LEVEL OF CONSCIOUSNESS [None]
  - DRUG INEFFECTIVE [None]
  - HYPERTENSION [None]
  - LABILE BLOOD PRESSURE [None]
  - MANIA [None]
  - NEUROLEPTIC MALIGNANT SYNDROME [None]
  - WEIGHT INCREASED [None]
  - WHITE BLOOD CELL COUNT INCREASED [None]
